FAERS Safety Report 23810237 (Version 1)
Quarter: 2024Q2

REPORT INFORMATION
  Report Type: Spontaneous
  Country: TR (occurrence: TR)
  Receive Date: 20240502
  Receipt Date: 20240502
  Transmission Date: 20240716
  Serious: Yes (Other)
  Sender: FDA-Public Use
  Company Number: TR-PAIPHARMA-2024-TR-000040

PATIENT
  Age: 24 Year
  Sex: Male

DRUGS (2)
  1. IBUPROFEN [Suspect]
     Active Substance: IBUPROFEN
     Indication: Myocarditis
  2. COLCHICINE [Concomitant]
     Active Substance: COLCHICINE

REACTIONS (1)
  - Kounis syndrome [Unknown]
